FAERS Safety Report 8125849 (Version 7)
Quarter: 2013Q4

REPORT INFORMATION
  Report Type: Spontaneous
  Country: FR (occurrence: FR)
  Receive Date: 20110908
  Receipt Date: 20131015
  Transmission Date: 20140711
  Serious: Yes (Hospitalization)
  Sender: FDA-Public Use
  Company Number: FR-SANOFI-AVENTIS-2011SA056509

PATIENT
  Age: 69 Year
  Sex: Male
  Weight: 74 kg

DRUGS (8)
  1. MULTAQ [Suspect]
     Indication: ATRIAL FIBRILLATION
     Route: 048
     Dates: start: 20110111, end: 20110131
  2. MULTAQ [Suspect]
     Indication: ATRIAL FIBRILLATION
     Route: 065
     Dates: start: 20110630, end: 20110812
  3. CORDARONE [Suspect]
     Indication: ATRIAL FIBRILLATION
     Route: 048
     Dates: start: 20091005, end: 20110102
  4. IMOVANE [Concomitant]
  5. PREVISCAN [Concomitant]
  6. CARDENSIEL [Concomitant]
     Dates: start: 201005, end: 201101
  7. CARDENSIEL [Concomitant]
     Dates: start: 20110120
  8. CORGARD [Concomitant]
     Dates: start: 201107

REACTIONS (5)
  - Interstitial lung disease [Recovered/Resolved with Sequelae]
  - Dyspnoea [Recovered/Resolved]
  - Eosinophilia [Recovered/Resolved with Sequelae]
  - Bronchitis [Recovered/Resolved with Sequelae]
  - Off label use [Unknown]
